FAERS Safety Report 4665449-0 (Version None)
Quarter: 2005Q2

REPORT INFORMATION
  Report Type: 
  Country: None (occurrence: None)
  Receive Date: 20050518
  Receipt Date: 20050518
  Transmission Date: 20051028
  Serious: Yes (Hospitalization)
  Sender: FDA-Public Use
  Company Number: None

PATIENT
  Sex: Male

DRUGS (13)
  1. GATIFLOXACIN [Suspect]
     Indication: URINARY TRACT INFECTION
     Dosage: 400 MG DAILY ORAL
     Route: 048
     Dates: start: 20050210, end: 20050210
  2. MAGNESIUM CITRATE [Concomitant]
  3. INSULIN [Concomitant]
  4. ISMO [Concomitant]
  5. LACTULOSE [Concomitant]
  6. LEVOTHYROXINE SODIUM [Concomitant]
  7. LISINOPRIL [Concomitant]
  8. METOPROLOL [Concomitant]
  9. QUETIAPINE [Concomitant]
  10. SIMVASTATIN [Concomitant]
  11. TERAZOSIN [Concomitant]
  12. VALPROIC ACID [Concomitant]
  13. WARFARIN SODIUM [Concomitant]

REACTIONS (2)
  - BLOOD GLUCOSE DECREASED [None]
  - MENTAL STATUS CHANGES [None]
